FAERS Safety Report 13155930 (Version 1)
Quarter: 2017Q1

REPORT INFORMATION
  Report Type: Spontaneous
  Country: US (occurrence: US)
  Receive Date: 20170126
  Receipt Date: 20170126
  Transmission Date: 20170428
  Serious: No
  Sender: FDA-Public Use
  Company Number: US-ROCHE-670512

PATIENT
  Sex: Male

DRUGS (1)
  1. VALIUM [Suspect]
     Active Substance: DIAZEPAM
     Indication: MUSCULAR WEAKNESS
     Route: 065

REACTIONS (3)
  - Drug ineffective [Unknown]
  - No adverse event [Unknown]
  - Affect lability [Unknown]
